FAERS Safety Report 8823895 (Version 1)
Quarter: 2012Q4

REPORT INFORMATION
  Report Type: 
  Country: JP (occurrence: JP)
  Receive Date: 20121003
  Receipt Date: 20121003
  Transmission Date: 20130627
  Serious: Yes (Other)
  Sender: FDA-Public Use
  Company Number: PHHY2012JP075283

PATIENT
  Age: 51 Year
  Sex: Female
  Weight: 44 kg

DRUGS (11)
  1. CICLOSPORIN [Suspect]
     Indication: IMMUNOSUPPRESSANT DRUG THERAPY
  2. MYCOPHENOLATE MOFETIL [Suspect]
     Indication: IMMUNOSUPPRESSANT DRUG THERAPY
     Route: 048
  3. TACROLIMUS [Suspect]
     Indication: IMMUNOSUPPRESSANT DRUG THERAPY
     Route: 048
  4. PREDNISOLONE [Suspect]
     Indication: IMMUNOSUPPRESSANT DRUG THERAPY
     Route: 048
  5. VALPROATE SODIUM [Concomitant]
     Indication: EPILEPSY
     Route: 048
  6. URSODEOXYCHOLIC ACID [Concomitant]
     Route: 048
  7. LANSOPRAZOLE [Concomitant]
  8. SULFAMETHOXAZOLE W/TRIMETHOPRIM [Concomitant]
     Route: 048
  9. VALACICLOVIR HYDROCHLORIDE [Concomitant]
     Route: 048
  10. FLUCONAZOLE [Concomitant]
  11. DIPYRIDAMOLE [Concomitant]

REACTIONS (6)
  - Chronic hepatitis C [Unknown]
  - Liver function test abnormal [Unknown]
  - Staphylococcal infection [Unknown]
  - Pyrexia [Unknown]
  - Thrombocytopenia [Unknown]
  - Thrombotic microangiopathy [Unknown]
